FAERS Safety Report 8379504-5 (Version None)
Quarter: 2012Q1

REPORT INFORMATION
  Report Type: 
  Country: None (occurrence: None)
  Receive Date: 20120323
  Receipt Date: 20110307
  Transmission Date: 20120608
  Serious: Yes (Other)
  Sender: FDA-Public Use
  Company Number: 163-21880-11031041

PATIENT
  Age: 89 Year
  Sex: Male

DRUGS (5)
  1. REVLIMID [Suspect]
     Indication: MYELODYSPLASTIC SYNDROME
     Dosage: 5 MG, DAILY TIW, PO 5 MG, DAILY TIW, PO
     Route: 048
     Dates: start: 20110221
  2. REVLIMID [Suspect]
     Indication: MASTOCYTOMA
     Dosage: 5 MG, DAILY TIW, PO 5 MG, DAILY TIW, PO
     Route: 048
     Dates: start: 20110221
  3. REVLIMID [Suspect]
     Indication: MYELODYSPLASTIC SYNDROME
     Dosage: 5 MG, DAILY TIW, PO 5 MG, DAILY TIW, PO
     Route: 048
     Dates: start: 20100625, end: 20110101
  4. REVLIMID [Suspect]
     Indication: MASTOCYTOMA
     Dosage: 5 MG, DAILY TIW, PO 5 MG, DAILY TIW, PO
     Route: 048
     Dates: start: 20100625, end: 20110101
  5. ASPIRIN [Concomitant]

REACTIONS (1)
  - FEMUR FRACTURE [None]
